FAERS Safety Report 4560810-7 (Version None)
Quarter: 2005Q1

REPORT INFORMATION
  Report Type: 
  Country: None (occurrence: None)
  Receive Date: 20050126
  Receipt Date: 20030925
  Transmission Date: 20050727
  Serious: Yes (Life-Threatening, Hospitalization)
  Sender: FDA-Public Use
  Company Number: PHNU2003DE03515

PATIENT
  Sex: Female

DRUGS (2)
  1. ELCRIT [Suspect]
  2. CLOZAPINE [Suspect]
     Dosage: UNKNOWN
     Route: 048
     Dates: start: 20030919, end: 20030919

REACTIONS (9)
  - BRADYCARDIA [None]
  - CIRCULATORY COLLAPSE [None]
  - COORDINATION ABNORMAL [None]
  - DYSARTHRIA [None]
  - HYPOTENSION [None]
  - INTENTIONAL MISUSE [None]
  - NAUSEA [None]
  - SOMNOLENCE [None]
  - VICTIM OF CRIME [None]
